FAERS Safety Report 7214815-8 (Version None)
Quarter: 2011Q1

REPORT INFORMATION
  Report Type: 
  Country: None (occurrence: None)
  Receive Date: 20110107
  Receipt Date: 20100311
  Transmission Date: 20110831
  Serious: No
  Sender: FDA-Public Use
  Company Number: A0849703A

PATIENT
  Age: 80 Year
  Sex: Female

DRUGS (6)
  1. CALCIUM [Concomitant]
  2. ANTACID LIQUID [Suspect]
     Route: 048
  3. ZANTAC [Suspect]
     Route: 048
  4. ACETAMINOPHEN [Concomitant]
  5. BENICAR [Concomitant]
  6. LOVAZA [Suspect]
     Indication: BLOOD CHOLESTEROL INCREASED
     Dosage: 1CAP PER DAY
     Route: 048
     Dates: start: 20100309

REACTIONS (2)
  - DRY THROAT [None]
  - DYSPHAGIA [None]
